FAERS Safety Report 7465682-9 (Version None)
Quarter: 2011Q2

REPORT INFORMATION
  Report Type: 
  Country: None (occurrence: None)
  Receive Date: 20110509
  Receipt Date: 20110420
  Transmission Date: 20111010
  Serious: Yes (Hospitalization)
  Sender: FDA-Public Use
  Company Number: B0546503A

PATIENT
  Sex: Male
  Weight: 69 kg

DRUGS (7)
  1. MELPHALAN HYDROCHLORIDE [Suspect]
     Indication: MULTIPLE MYELOMA
     Dosage: 12MG PER DAY
     Route: 048
     Dates: start: 20080819, end: 20080919
  2. ACETYLSALICYLACID [Concomitant]
     Dates: start: 20080819
  3. TRAMADOL [Concomitant]
     Dates: start: 20080902
  4. RAMIPRIL [Concomitant]
     Dates: start: 20080401
  5. PREDNISONE [Suspect]
     Indication: MULTIPLE MYELOMA
     Dosage: 134MG PER DAY
     Route: 048
     Dates: start: 20080819, end: 20080919
  6. PLACEBO [Suspect]
     Indication: MULTIPLE MYELOMA
     Dosage: 10MG PER DAY
     Route: 048
     Dates: start: 20080819, end: 20080925
  7. LANSOPRAZOLE [Concomitant]
     Dates: start: 20080819

REACTIONS (2)
  - HEMIPARESIS [None]
  - PYREXIA [None]
